FAERS Safety Report 16706899 (Version 1)
Quarter: 2019Q3

REPORT INFORMATION
  Report Type: Spontaneous
  Country: FR (occurrence: FR)
  Receive Date: 20190815
  Receipt Date: 20190815
  Transmission Date: 20191004
  Serious: Yes (Hospitalization)
  Sender: FDA-Public Use
  Company Number: FR-TEVA-2019-FR-1092639

PATIENT
  Age: 69 Year
  Sex: Female
  Weight: 65 kg

DRUGS (3)
  1. FLUOROURACILE [Suspect]
     Active Substance: FLUOROURACIL
     Indication: NASAL CAVITY CANCER
     Dosage: 33000MG
     Route: 041
     Dates: start: 20190503
  2. CISPLATINE [Suspect]
     Active Substance: CISPLATIN
     Indication: NASAL CAVITY CANCER
     Dosage: 66MG
     Route: 041
     Dates: start: 20190503
  3. TAXOTERE [Suspect]
     Active Substance: DOCETAXEL
     Indication: NASAL CAVITY CANCER
     Dosage: 33000 MG
     Route: 041
     Dates: start: 20190503

REACTIONS (1)
  - Anaphylactoid shock [Recovered/Resolved]

NARRATIVE: CASE EVENT DATE: 20190503
